FAERS Safety Report 6533958-5 (Version None)
Quarter: 2010Q1

REPORT INFORMATION
  Report Type: 
  Country: None (occurrence: None)
  Receive Date: 20100108
  Receipt Date: 20100108
  Transmission Date: 20100710
  Serious: Yes (Other)
  Sender: FDA-Public Use
  Company Number: None

PATIENT
  Age: 28 Year
  Sex: Female
  Weight: 70.3075 kg

DRUGS (4)
  1. CITALOPRAM HYDROBROMIDE [Suspect]
     Indication: DEPRESSION
     Dosage: 10MG QD PO
     Route: 048
     Dates: start: 20091208, end: 20091212
  2. BUPROPION HCL [Concomitant]
  3. VIACTIV [Concomitant]
  4. MULTI-VITAMIN [Concomitant]

REACTIONS (18)
  - AGEUSIA [None]
  - BALANCE DISORDER [None]
  - CHROMATURIA [None]
  - DECREASED APPETITE [None]
  - DIARRHOEA [None]
  - DIZZINESS [None]
  - DRY MOUTH [None]
  - DRY SKIN [None]
  - FLUID INTAKE REDUCED [None]
  - HEADACHE [None]
  - HYPOPHAGIA [None]
  - MUCOUS MEMBRANE DISORDER [None]
  - MUSCLE SPASMS [None]
  - MYDRIASIS [None]
  - NAUSEA [None]
  - PHOTOPHOBIA [None]
  - TREMOR [None]
  - VOMITING [None]
